FAERS Safety Report 24743158 (Version 2)
Quarter: 2024Q4

REPORT INFORMATION
  Report Type: Report from Study
  Country: GR (occurrence: GR)
  Receive Date: 20241217
  Receipt Date: 20241226
  Transmission Date: 20250115
  Serious: Yes (Hospitalization, Other)
  Sender: ABBVIE
  Company Number: GR-ABBVIE-6044774

PATIENT
  Age: 69 Year
  Sex: Male

DRUGS (3)
  1. CARBIDOPA\LEVODOPA [Suspect]
     Active Substance: CARBIDOPA\LEVODOPA
     Indication: Parkinson^s disease
     Dosage: MORNING DOSE: 15.0ML; CONTINUOUS RATE: 4.3ML/H; EXTRA DOSE: 2.0ML
     Route: 050
     Dates: start: 20170307
  2. CARBIDOPA\LEVODOPA [Suspect]
     Active Substance: CARBIDOPA\LEVODOPA
     Dosage: MORNING DOSE: 15.0ML; CONTINUOUS RATE: 5.0ML/H; EXTRA DOSE: 2.0ML
     Route: 050
  3. CARBIDOPA\LEVODOPA [Suspect]
     Active Substance: CARBIDOPA\LEVODOPA
     Dosage: MORNING DOSE: 15.0ML; CONTINUOUS RATE: 4.6ML/H; EXTRA DOSE: 2.0ML
     Route: 050

REACTIONS (8)
  - Pyrexia [Recovered/Resolved]
  - Fatigue [Not Recovered/Not Resolved]
  - Purulent discharge [Unknown]
  - Mobility decreased [Not Recovered/Not Resolved]
  - Sepsis [Recovered/Resolved]
  - Decubitus ulcer [Not Recovered/Not Resolved]
  - Muscle atrophy [Not Recovered/Not Resolved]
  - Bedridden [Not Recovered/Not Resolved]
